FAERS Safety Report 5619521-9 (Version None)
Quarter: 2008Q1

REPORT INFORMATION
  Report Type: 
  Country: None (occurrence: None)
  Receive Date: 20080205
  Receipt Date: 20080205
  Transmission Date: 20080703
  Serious: No
  Sender: FDA-Public Use
  Company Number: None

PATIENT
  Age: 58 Year
  Sex: Female
  Weight: 75.2971 kg

DRUGS (8)
  1. IXEMPRA KIT [Suspect]
     Indication: BREAST CANCER METASTATIC
     Dosage: 75MG ONCE IV DRIP
     Route: 041
     Dates: start: 20080131, end: 20080131
  2. MULTI-VITAMIN [Concomitant]
  3. VITAMIN B6 [Concomitant]
  4. VITAMIN E [Concomitant]
  5. CALCIUM [Concomitant]
  6. OXYCODONE HCL [Concomitant]
  7. PROPRANOLOL [Concomitant]
  8. XELODA [Concomitant]

REACTIONS (10)
  - ABASIA [None]
  - BLISTER [None]
  - DRUG EFFECT DECREASED [None]
  - DYSPHAGIA [None]
  - DYSSTASIA [None]
  - ERYTHEMA [None]
  - OEDEMA PERIPHERAL [None]
  - PAIN IN EXTREMITY [None]
  - PHARYNGEAL DISORDER [None]
  - SWOLLEN TONGUE [None]
